FAERS Safety Report 9777129 (Version 3)
Quarter: 2013Q4

REPORT INFORMATION
  Report Type: Report from Study
  Country: CA (occurrence: CA)
  Receive Date: 20131221
  Receipt Date: 20131225
  Transmission Date: 20140711
  Serious: Yes (Other)
  Sender: FDA-Public Use
  Company Number: CA-ROCHE-1097208

PATIENT
  Age: 69 Year
  Sex: Female
  Weight: 60 kg

DRUGS (10)
  1. RITUXAN [Suspect]
     Indication: RHEUMATOID ARTHRITIS
     Route: 042
     Dates: start: 20110720
  2. GABAPENTIN [Suspect]
     Indication: PRODUCT USED FOR UNKNOWN INDICATION
     Route: 065
  3. FOLIC ACID [Concomitant]
  4. PANTOLOC [Concomitant]
  5. ZOPICLONE [Concomitant]
  6. SPIRIVA [Concomitant]
  7. METHOTREXATE [Concomitant]
  8. DIPHENHYDRAMINE HCL [Concomitant]
     Indication: PREMEDICATION
     Route: 048
     Dates: start: 20110720
  9. ACETAMINOPHEN [Concomitant]
     Route: 048
     Dates: start: 20110720
  10. PREDNISONE [Concomitant]
     Route: 048
     Dates: start: 20110720

REACTIONS (6)
  - Tachycardia [Recovering/Resolving]
  - Vertebral osteophyte [Unknown]
  - Neck pain [Not Recovered/Not Resolved]
  - Bronchitis [Recovered/Resolved]
  - Headache [Not Recovered/Not Resolved]
  - Blood pressure increased [Not Recovered/Not Resolved]
